FAERS Safety Report 21332279 (Version 6)
Quarter: 2023Q1

REPORT INFORMATION
  Report Type: Report from Study
  Country: US (occurrence: US)
  Receive Date: 20220914
  Receipt Date: 20230308
  Transmission Date: 20230418
  Serious: Yes (Other)
  Sender: FDA-Public Use
  Company Number: US-002147023-NVSC2022US205050

PATIENT
  Age: 50 Year
  Sex: Female

DRUGS (3)
  1. KESIMPTA [Suspect]
     Active Substance: OFATUMUMAB
     Indication: Relapsing multiple sclerosis
     Dosage: 20 MG, QMO
     Route: 058
     Dates: start: 20220830
  2. KESIMPTA [Suspect]
     Active Substance: OFATUMUMAB
     Dosage: 20 MG, QMO
     Route: 058
     Dates: start: 20230127
  3. TYLENOL [Concomitant]
     Active Substance: ACETAMINOPHEN
     Indication: Premedication
     Dosage: UNK
     Route: 065

REACTIONS (10)
  - Pancreatitis [Unknown]
  - Multiple sclerosis [Unknown]
  - Pain [Unknown]
  - Hypersomnia [Unknown]
  - Road traffic accident [Unknown]
  - Headache [Unknown]
  - Diplopia [Unknown]
  - Hypoaesthesia [Unknown]
  - Muscle spasticity [Unknown]
  - Fatigue [Unknown]

NARRATIVE: CASE EVENT DATE: 20220909
